FAERS Safety Report 16046519 (Version 1)
Quarter: 2019Q1

REPORT INFORMATION
  Report Type: Spontaneous
  Country: JP (occurrence: JP)
  Receive Date: 20190307
  Receipt Date: 20190307
  Transmission Date: 20190418
  Serious: Yes (Other)
  Sender: FDA-Public Use
  Company Number: JP-GLAXOSMITHKLINE-JP2019JPN027376

PATIENT
  Age: 76 Year
  Sex: Female

DRUGS (2)
  1. ALLERMIST [Suspect]
     Active Substance: FLUTICASONE FUROATE
     Dosage: UNK UNK, QD
     Route: 045
  2. ALLERMIST [Suspect]
     Active Substance: FLUTICASONE FUROATE
     Dosage: 110 ?G, QD
     Route: 045
     Dates: start: 20190208

REACTIONS (4)
  - Arrhythmia [Unknown]
  - Palpitations [Unknown]
  - Pancreatic carcinoma [Unknown]
  - Cardiovascular disorder [Unknown]

NARRATIVE: CASE EVENT DATE: 20190208
